FAERS Safety Report 18147678 (Version 1)
Quarter: 2020Q3

REPORT INFORMATION
  Report Type: Spontaneous
  Country: US (occurrence: US)
  Receive Date: 20200813
  Receipt Date: 20200813
  Transmission Date: 20201103
  Serious: No
  Sender: FDA-Public Use
  Company Number: US-ELI_LILLY_AND_COMPANY-US202008005280

PATIENT
  Age: 15 Year
  Sex: Male

DRUGS (2)
  1. HUMATROPE [Suspect]
     Active Substance: SOMATROPIN
     Indication: HYPOPITUITARISM
     Dosage: UNK UNK, UNKNOWN
     Route: 065
     Dates: start: 201908
  2. HUMATROPE [Suspect]
     Active Substance: SOMATROPIN
     Dosage: 1.9 MG, 6/W
     Route: 065
     Dates: start: 202001

REACTIONS (1)
  - Insulin-like growth factor increased [Unknown]

NARRATIVE: CASE EVENT DATE: 202001
